FAERS Safety Report 5068604-3 (Version None)
Quarter: 2006Q3

REPORT INFORMATION
  Report Type: 
  Country: None (occurrence: None)
  Receive Date: 20060802
  Receipt Date: 20051229
  Transmission Date: 20061208
  Serious: No
  Sender: FDA-Public Use
  Company Number: US-BRISTOL-MYERS SQUIBB COMPANY-13232392

PATIENT
  Age: 77 Year
  Sex: Female
  Weight: 68 kg

DRUGS (5)
  1. COUMADIN [Suspect]
     Indication: THROMBOSIS
     Dates: start: 20051104
  2. TOPROL-XL [Concomitant]
  3. NEXIUM [Concomitant]
  4. ZETIA [Concomitant]
  5. WELCHOL [Concomitant]

REACTIONS (1)
  - DIARRHOEA [None]
